FAERS Safety Report 13362953 (Version 1)
Quarter: 2017Q1

REPORT INFORMATION
  Report Type: Spontaneous
  Country: US (occurrence: US)
  Receive Date: 20170322
  Receipt Date: 20170322
  Transmission Date: 20170429
  Serious: Yes (Hospitalization, Disabling, Other)
  Sender: FDA-Public Use
  Company Number: None

PATIENT
  Age: 69 Year
  Sex: Female
  Weight: 81 kg

DRUGS (14)
  1. EFFEXOR [Concomitant]
     Active Substance: VENLAFAXINE HYDROCHLORIDE
  2. LISINOPROL [Concomitant]
     Active Substance: LISINOPRIL
  3. LORAZEPAM. [Concomitant]
     Active Substance: LORAZEPAM
  4. VENLAFAXINE HCL [Concomitant]
     Active Substance: VENLAFAXINE HYDROCHLORIDE
  5. CHLORHEXIDINE [Concomitant]
     Active Substance: CHLORHEXIDINE
  6. LIDOCAINE PATCHES [Concomitant]
  7. FLUOROMETHOLONE. [Concomitant]
     Active Substance: FLUOROMETHOLONE
  8. OMEPRAZOLE. [Concomitant]
     Active Substance: OMEPRAZOLE
  9. VITAMIN B12 [Concomitant]
     Active Substance: CYANOCOBALAMIN
  10. VITAMIN D [Concomitant]
     Active Substance: CHOLECALCIFEROL
  11. AMLODIPINE [Suspect]
     Active Substance: AMLODIPINE BESYLATE
     Indication: HYPERTENSION
     Dosage: ?          QUANTITY:30 TABLET(S);?
     Route: 048
     Dates: start: 20120101, end: 20170322
  12. LIPITOR [Concomitant]
     Active Substance: ATORVASTATIN CALCIUM
  13. TYLENOL [Concomitant]
     Active Substance: ACETAMINOPHEN
  14. POTASSIUM [Concomitant]
     Active Substance: POTASSIUM

REACTIONS (9)
  - Hypotension [None]
  - Vertigo [None]
  - Hyperhidrosis [None]
  - Anorectal disorder [None]
  - Intestinal obstruction [None]
  - Dysphonia [None]
  - Drug hypersensitivity [None]
  - Internal haemorrhage [None]
  - Muscular weakness [None]

NARRATIVE: CASE EVENT DATE: 20150314
